FAERS Safety Report 4912329-9 (Version None)
Quarter: 2006Q1

REPORT INFORMATION
  Report Type: 
  Country: None (occurrence: None)
  Receive Date: 20060215
  Receipt Date: 20060208
  Transmission Date: 20060701
  Serious: Yes (Other)
  Sender: FDA-Public Use
  Company Number: PHEH2006US01925

PATIENT
  Age: 82 Year
  Sex: Female

DRUGS (5)
  1. SYNTHROID [Concomitant]
  2. LIPITOR                                 /NET/ [Concomitant]
     Dosage: 10 MG, UNK
  3. ZOLOFT [Concomitant]
     Dosage: 25 MG, UNK
  4. PROTONIX [Concomitant]
     Dosage: 40 MG, UNK
  5. ENABLEX [Suspect]
     Indication: HYPERTONIC BLADDER
     Dosage: 7.5 MG, QD
     Dates: start: 20060101

REACTIONS (2)
  - DIZZINESS [None]
  - SURGERY [None]
